FAERS Safety Report 5387827-7 (Version None)
Quarter: 2007Q3

REPORT INFORMATION
  Report Type: 
  Country: None (occurrence: None)
  Receive Date: 20070716
  Receipt Date: 20060707
  Transmission Date: 20080115
  Serious: No
  Sender: FDA-Public Use
  Company Number: A0611262A

PATIENT
  Age: 62 Year
  Sex: Female

DRUGS (1)
  1. NICORETTE [Suspect]
     Dates: start: 20060505

REACTIONS (2)
  - GLOSSODYNIA [None]
  - INTENTIONAL DRUG MISUSE [None]
